FAERS Safety Report 6674621-X (Version None)
Quarter: 2010Q1

REPORT INFORMATION
  Report Type: 
  Country: None (occurrence: None)
  Receive Date: 20100329
  Receipt Date: 20090626
  Transmission Date: 20100710
  Serious: Yes (Other)
  Sender: FDA-Public Use
  Company Number: 2009182956

PATIENT

DRUGS (1)
  1. GEODON (ZIPRASIDONE HCL) UNKNOWN [Suspect]

REACTIONS (1)
  - EXTRAPYRAMIDAL DISORDER [None]
